FAERS Safety Report 9564025 (Version 4)
Quarter: 2017Q1

REPORT INFORMATION
  Report Type: Report from Study
  Country: ES (occurrence: ES)
  Receive Date: 20130928
  Receipt Date: 20170117
  Transmission Date: 20170429
  Serious: Yes (Hospitalization)
  Sender: FDA-Public Use
  Company Number: ES-BRISTOL-MYERS SQUIBB COMPANY-19404193

PATIENT
  Sex: Male

DRUGS (3)
  1. ABRAXANE [Concomitant]
     Active Substance: PACLITAXEL
     Indication: PRODUCT USED FOR UNKNOWN INDICATION
     Dosage: 125 MG/M2, UNK
     Route: 065
     Dates: start: 20130902, end: 20130909
  2. IPILIMUMAB [Suspect]
     Active Substance: IPILIMUMAB
     Indication: METASTATIC MALIGNANT MELANOMA
     Dosage: 125 MG/M2, UNK
     Route: 065
     Dates: start: 20130902, end: 20130909
  3. METOCLOPRAMIDE. [Concomitant]
     Active Substance: METOCLOPRAMIDE
     Indication: PRODUCT USED FOR UNKNOWN INDICATION
     Dosage: UNK
     Route: 065
     Dates: start: 20130902, end: 20130916

REACTIONS (1)
  - Diarrhoea [Recovered/Resolved]
